FAERS Safety Report 22143628 (Version 2)
Quarter: 2023Q1

REPORT INFORMATION
  Report Type: Spontaneous
  Country: US (occurrence: US)
  Receive Date: 20230327
  Receipt Date: 20230331
  Transmission Date: 20230418
  Serious: No
  Sender: FDA-Public Use
  Company Number: US-AcelRx Pharmaceuticals, Inc-ACEL20230078

PATIENT
  Age: 26 Year
  Sex: Male

DRUGS (5)
  1. DSUVIA [Suspect]
     Active Substance: SUFENTANIL
     Indication: Analgesic therapy
     Dosage: 30 MCG AT 7:05 AM AND 30 MCG AT 9 AM
     Route: 060
  2. PROPOFOL [Concomitant]
     Active Substance: PROPOFOL
     Indication: Sedation
     Dosage: 1800 MG, UNKNOWN
     Route: 042
     Dates: start: 20230322, end: 20230322
  3. _dexamethasone [Concomitant]
     Indication: Product used for unknown indication
     Dosage: 10 MG, UNKNOWN
     Route: 042
  4. FENTANYL [Concomitant]
     Active Substance: FENTANYL
     Indication: Product used for unknown indication
     Dosage: 25 MCG, UNKNOWN
     Route: 042
  5. KETAMINE [Concomitant]
     Active Substance: KETAMINE
     Indication: Product used for unknown indication
     Dosage: 50 MG, UNKNOWN
     Route: 042

REACTIONS (3)
  - Dyspnoea [Recovered/Resolved]
  - Head titubation [Recovered/Resolved]
  - Dyskinesia [Recovered/Resolved]

NARRATIVE: CASE EVENT DATE: 20230322
